FAERS Safety Report 21757917 (Version 2)
Quarter: 2023Q4

REPORT INFORMATION
  Report Type: Spontaneous
  Country: US (occurrence: None)
  Receive Date: 20221221
  Receipt Date: 20231220
  Transmission Date: 20240109
  Serious: No
  Sender: FDA-Public Use
  Company Number: US-ROCHE-3183515

PATIENT

DRUGS (1)
  1. ACTIVASE [Suspect]
     Active Substance: ALTEPLASE
     Indication: Product used for unknown indication
     Dosage: 1 MG/ML IN SWFI
     Route: 042

REACTIONS (3)
  - Off label use [Unknown]
  - Product storage error [Unknown]
  - No adverse event [Unknown]
